FAERS Safety Report 4791971-2 (Version None)
Quarter: 2005Q4

REPORT INFORMATION
  Report Type: 
  Country: None (occurrence: None)
  Receive Date: 20051005
  Receipt Date: 20050919
  Transmission Date: 20060501
  Serious: Yes (Death)
  Sender: FDA-Public Use
  Company Number: DSA_70803_2005

PATIENT
  Age: 22 Year

DRUGS (2)
  1. METHADONE [Suspect]
     Dosage: DF UNK PO
  2. ETHANOL [Suspect]
     Dosage: DF UNK PO

REACTIONS (3)
  - CARDIO-RESPIRATORY ARREST [None]
  - INTENTIONAL DRUG MISUSE [None]
  - MULTIPLE DRUG OVERDOSE [None]
